FAERS Safety Report 7684167-8 (Version None)
Quarter: 2011Q3

REPORT INFORMATION
  Report Type: 
  Country: None (occurrence: None)
  Receive Date: 20110815
  Receipt Date: 20110811
  Transmission Date: 20111222
  Serious: Yes (Hospitalization, Other)
  Sender: FDA-Public Use
  Company Number: DE-ABBOTT-11P-062-0845674-00

PATIENT
  Age: 15 Year
  Sex: Male

DRUGS (6)
  1. VALPROIC ACID [Suspect]
     Indication: JUVENILE MYOCLONIC EPILEPSY
     Route: 065
  2. ZONISAMIDE [Suspect]
     Indication: CONVULSION
     Route: 065
  3. LACOSAMIDE [Suspect]
     Indication: CONVULSION
  4. LEVETIRACETAM [Concomitant]
     Indication: EPILEPSY
  5. ANTIEPILEPTICS [Suspect]
     Indication: CONVULSION
     Route: 065
  6. LAMOTRIGINE [Concomitant]
     Indication: EPILEPSY

REACTIONS (10)
  - FEEDING DISORDER [None]
  - ABNORMAL BEHAVIOUR [None]
  - AGGRESSION [None]
  - LAFORA'S MYOCLONIC EPILEPSY [None]
  - HALLUCINATION, VISUAL [None]
  - MOTOR DYSFUNCTION [None]
  - CONDITION AGGRAVATED [None]
  - NERVOUS SYSTEM DISORDER [None]
  - COORDINATION ABNORMAL [None]
  - COMMUNICATION DISORDER [None]
